FAERS Safety Report 19854921 (Version 1)
Quarter: 2021Q3

REPORT INFORMATION
  Report Type: Spontaneous
  Country: US (occurrence: US)
  Receive Date: 20210917
  Receipt Date: 20210917
  Transmission Date: 20211014
  Serious: No
  Sender: FDA-Public Use
  Company Number: None

PATIENT
  Age: 51 Year
  Sex: Female

DRUGS (1)
  1. AFINITOR [Suspect]
     Active Substance: EVEROLIMUS
     Indication: BREAST CANCER FEMALE
     Route: 048

REACTIONS (4)
  - Vomiting [None]
  - Nausea [None]
  - Headache [None]
  - Oropharyngeal pain [None]

NARRATIVE: CASE EVENT DATE: 20210827
